FAERS Safety Report 9895381 (Version 2)
Quarter: 2014Q1

REPORT INFORMATION
  Report Type: Spontaneous
  Country: US (occurrence: US)
  Receive Date: 20140213
  Receipt Date: 20140213
  Transmission Date: 20141002
  Serious: No
  Sender: FDA-Public Use
  Company Number: US-BRISTOL-MYERS SQUIBB COMPANY-17277740

PATIENT
  Age: 68 Year
  Sex: Male
  Weight: 74.37 kg

DRUGS (1)
  1. ORENCIA FOR INJ 250 MG/VIAL [Suspect]
     Indication: RHEUMATOID ARTHRITIS
     Dosage: STARTED ABOUT 2 YEARS AGO AND LAST INFUSION ON 03JAN2013,PARTIAL INFUSION
     Route: 042

REACTIONS (4)
  - Infusion site extravasation [Recovering/Resolving]
  - Incorrect dose administered [Unknown]
  - Rheumatoid arthritis [Recovering/Resolving]
  - Drug ineffective [Unknown]
